FAERS Safety Report 10172961 (Version 1)
Quarter: 2014Q2

REPORT INFORMATION
  Report Type: Spontaneous
  Country: US (occurrence: None)
  Receive Date: 20140514
  Receipt Date: 20140514
  Transmission Date: 20141212
  Serious: Yes (Life-Threatening)
  Sender: FDA-Public Use
  Company Number: None

PATIENT
  Age: 70 Year
  Sex: Female
  Weight: 86.18 kg

DRUGS (5)
  1. BENAZEPRIL [Suspect]
     Indication: HYPERTENSION
     Route: 048
     Dates: start: 20140407, end: 20140502
  2. AMLODIPINE [Concomitant]
  3. COQ10 [Concomitant]
  4. L-CARNITINE [Concomitant]
  5. ASPIRIN [Concomitant]

REACTIONS (7)
  - Cardiac failure [None]
  - Arthralgia [None]
  - Myalgia [None]
  - Asthenia [None]
  - Fatigue [None]
  - Productive cough [None]
  - Visual impairment [None]
